FAERS Safety Report 18046648 (Version 1)
Quarter: 2020Q3

REPORT INFORMATION
  Report Type: Report from Study
  Country: KR (occurrence: KR)
  Receive Date: 20200721
  Receipt Date: 20200721
  Transmission Date: 20201103
  Serious: Yes (Death)
  Sender: FDA-Public Use
  Company Number: KR-REGENERON PHARMACEUTICALS, INC.-2020-50966

PATIENT

DRUGS (1)
  1. EYLEA [Suspect]
     Active Substance: AFLIBERCEPT
     Indication: AGE-RELATED MACULAR DEGENERATION
     Dosage: 2 VIAL, DOSE, FREQUENCY OR TOTAL NUMBER OF INJECTIONS WERE NOT REPORTED
     Dates: start: 20191212, end: 20200528

REACTIONS (1)
  - Death [Fatal]
